FAERS Safety Report 7432347-9 (Version None)
Quarter: 2011Q2

REPORT INFORMATION
  Report Type: 
  Country: None (occurrence: None)
  Receive Date: 20110422
  Receipt Date: 20110419
  Transmission Date: 20111010
  Serious: Yes (Life-Threatening, Hospitalization)
  Sender: FDA-Public Use
  Company Number: CA-JNJFOC-20110308729

PATIENT
  Age: 33 Year
  Sex: Male

DRUGS (1)
  1. NICOTINE [Suspect]
     Indication: SMOKING CESSATION THERAPY

REACTIONS (4)
  - NAUSEA [None]
  - INSOMNIA [None]
  - CHEST PAIN [None]
  - VOMITING [None]
